FAERS Safety Report 5518471-6 (Version None)
Quarter: 2007Q4

REPORT INFORMATION
  Report Type: 
  Country: None (occurrence: None)
  Receive Date: 20071113
  Receipt Date: 20071113
  Transmission Date: 20080405
  Serious: Yes (Hospitalization)
  Sender: FDA-Public Use
  Company Number: None

PATIENT
  Age: 72 Year
  Sex: Female
  Weight: 86.1834 kg

DRUGS (1)
  1. SEPTRA DS [Suspect]
     Indication: SKIN INFECTION
     Dosage: DS, 1 TABLET TWICE PER DAY PO
     Route: 048
     Dates: start: 20070828, end: 20070829

REACTIONS (6)
  - ABDOMINAL PAIN UPPER [None]
  - CHROMATURIA [None]
  - DIZZINESS [None]
  - HEART RATE IRREGULAR [None]
  - NAUSEA [None]
  - RHABDOMYOLYSIS [None]
